FAERS Safety Report 19506875 (Version 1)
Quarter: 2021Q3

REPORT INFORMATION
  Report Type: Spontaneous
  Country: US (occurrence: US)
  Receive Date: 20210708
  Receipt Date: 20210708
  Transmission Date: 20211014
  Serious: Yes (Death, Other)
  Sender: FDA-Public Use
  Company Number: US-GLAXOSMITHKLINE-US2021GSK146061

PATIENT

DRUGS (4)
  1. RANITIDINE. [Suspect]
     Active Substance: RANITIDINE
     Indication: GASTRIC ANTRAL VASCULAR ECTASIA
     Dosage: 300 MG, QD
     Route: 065
     Dates: start: 200901, end: 201710
  2. RANITIDINE. [Suspect]
     Active Substance: RANITIDINE
     Indication: GASTRIC ANTRAL VASCULAR ECTASIA
     Dosage: 300 MG, QD
     Route: 065
     Dates: start: 200901, end: 201710
  3. RANITIDINE. [Suspect]
     Active Substance: RANITIDINE
     Indication: GASTRIC ANTRAL VASCULAR ECTASIA
     Dosage: 300 MG, QD
     Route: 065
     Dates: start: 200901, end: 201710
  4. RANITIDINE CAPSULE [Suspect]
     Active Substance: RANITIDINE
     Indication: GASTRIC ANTRAL VASCULAR ECTASIA
     Dosage: 300 MG, QD
     Route: 065
     Dates: start: 200901, end: 201710

REACTIONS (1)
  - Pancreatic carcinoma [Fatal]
